FAERS Safety Report 4412274-1 (Version None)
Quarter: 2004Q2

REPORT INFORMATION
  Report Type: 
  Country: None (occurrence: None)
  Receive Date: 20040630
  Receipt Date: 20040318
  Transmission Date: 20050107
  Serious: No
  Sender: FDA-Public Use
  Company Number: 04P-163-0254120-00

PATIENT
  Age: 72 Year
  Sex: Female
  Weight: 64.8644 kg

DRUGS (8)
  1. HUMIRA [Suspect]
     Indication: RHEUMATOID ARTHRITIS
     Dosage: 40 MG, 1 IN 2 WK, SUBCUTANEOUS
     Route: 058
     Dates: start: 20040120
  2. METHOTREXATE [Concomitant]
  3. PREDNISONE [Concomitant]
  4. ALENDRONATE SODIUM [Concomitant]
  5. TOCOPHEROL CONCENTRATE CAP [Concomitant]
  6. ASCORBIC ACID [Concomitant]
  7. GLUCOSAMINE W/CHONDROITIN SULFATES [Concomitant]
  8. MULTI-VITAMINS [Concomitant]

REACTIONS (5)
  - DRUG EFFECT DECREASED [None]
  - INJECTION SITE EXTRAVASATION [None]
  - INJECTION SITE HAEMORRHAGE [None]
  - INJECTION SITE SWELLING [None]
  - MEDICATION ERROR [None]
